FAERS Safety Report 7110681 (Version 3)
Quarter: 2013Q1

REPORT INFORMATION
  Report Type: Spontaneous
  Country: US (occurrence: US)
  Receive Date: 20090911
  Receipt Date: 20130124
  Transmission Date: 20140127
  Serious: Yes (Hospitalization)
  Sender: FDA-Public Use
  Company Number: US-BIOGENIDEC-2009BI027759

PATIENT
  Age: 65 Year
  Sex: Female

DRUGS (2)
  1. AVONEX [Suspect]
     Indication: MULTIPLE SCLEROSIS
     Route: 030
     Dates: start: 19980701, end: 2003
  2. AVONEX [Suspect]
     Indication: MULTIPLE SCLEROSIS
     Route: 030
     Dates: start: 2003

REACTIONS (5)
  - Hip fracture [Recovered/Resolved]
  - Arthritis [Recovered/Resolved]
  - Tremor [Recovered/Resolved]
  - Rotator cuff syndrome [Unknown]
  - Pain [Recovered/Resolved]
